FAERS Safety Report 8800898 (Version 3)
Quarter: 2013Q2

REPORT INFORMATION
  Report Type: Report from Study
  Country: US (occurrence: US)
  Receive Date: 20120920
  Receipt Date: 20130425
  Transmission Date: 20140414
  Serious: Yes (Hospitalization)
  Sender: FDA-Public Use
  Company Number: US-ROCHE-1101219

PATIENT
  Age: 38 Year
  Sex: Female
  Weight: 123.49 kg

DRUGS (10)
  1. TRASTUZUMAB [Suspect]
     Indication: BREAST CANCER
     Dosage: LAST DOSE PRIOR TO SAE:07/AUG/2012, LOADING DOSE
     Route: 042
     Dates: start: 20120802
  2. TRASTUZUMAB [Suspect]
     Dosage: LAST DOSE PRIOR TO SAE:23/AUG/2012, MAINTENANCE DOSE
     Route: 042
     Dates: start: 20120802
  3. DOCETAXEL [Suspect]
     Indication: BREAST CANCER
     Dosage: LAST DOSE PRIOR TO SAE:23/AUG/2012
     Route: 042
     Dates: start: 20120802
  4. CARBOPLATIN [Suspect]
     Indication: BREAST CANCER
     Dosage: LAST DOSE PRIOR TO SAE:23/AUG/2012
     Route: 042
     Dates: start: 20120802
  5. DOXYCYCLINE [Concomitant]
     Route: 065
     Dates: start: 20120712, end: 20120727
  6. OXYCODONE [Concomitant]
     Route: 065
     Dates: start: 201206
  7. LOSARTAN [Concomitant]
     Dosage: 100/25 MG
     Route: 065
     Dates: start: 201001
  8. METOPROLOL [Concomitant]
     Route: 065
     Dates: start: 201001
  9. AMLODIPINE [Concomitant]
     Route: 065
     Dates: start: 201001
  10. PLACEBO [Suspect]
     Indication: BREAST CANCER
     Dosage: LAST DOSE PRIOR TO SAE:02/AUG/2012
     Route: 042
     Dates: start: 20120802

REACTIONS (1)
  - Seroma [Recovered/Resolved]
